FAERS Safety Report 19522763 (Version 1)
Quarter: 2021Q3

REPORT INFORMATION
  Report Type: Spontaneous
  Country: US (occurrence: US)
  Receive Date: 20210712
  Receipt Date: 20210712
  Transmission Date: 20211014
  Serious: Yes (Other)
  Sender: FDA-Public Use
  Company Number: US-ENDO PHARMACEUTICALS INC-2021-004711

PATIENT
  Age: 41 Year
  Sex: Male

DRUGS (9)
  1. ZANTAC [Suspect]
     Active Substance: RANITIDINE HYDROCHLORIDE
     Indication: DYSPEPSIA
     Dosage: 150 MG, DAILY
     Route: 048
     Dates: start: 200101, end: 202007
  2. ZANTAC [Suspect]
     Active Substance: RANITIDINE HYDROCHLORIDE
     Indication: DYSPEPSIA
     Dosage: 150 MG, DAILY
     Route: 048
     Dates: start: 200101, end: 202007
  3. RANITIDINE HYDROCHLORIDE. [Suspect]
     Active Substance: RANITIDINE HYDROCHLORIDE
     Indication: DYSPEPSIA
     Dosage: 150 MG, DAILY
     Route: 048
     Dates: start: 200101, end: 202007
  4. RANITIDINE. [Suspect]
     Active Substance: RANITIDINE
     Indication: DYSPEPSIA
     Dosage: UNK UNKNOWN, DAILY
     Route: 048
     Dates: start: 200101, end: 202007
  5. RANITIDINE HYDROCHLORIDE. [Suspect]
     Active Substance: RANITIDINE HYDROCHLORIDE
     Dosage: 300 MG, DAILY
     Route: 048
     Dates: start: 200101, end: 202007
  6. RANITIDINE. [Suspect]
     Active Substance: RANITIDINE
     Dosage: 300 MG, DAILY
     Route: 048
     Dates: start: 200101, end: 202007
  7. ZANTAC [Suspect]
     Active Substance: RANITIDINE HYDROCHLORIDE
     Dosage: 300 MG, DAILY
     Route: 048
     Dates: start: 200101, end: 202007
  8. RANITIDINE. [Suspect]
     Active Substance: RANITIDINE
     Indication: DYSPEPSIA
     Dosage: 150 MG, DAILY
     Route: 048
     Dates: start: 200101, end: 202007
  9. ZANTAC [Suspect]
     Active Substance: RANITIDINE HYDROCHLORIDE
     Dosage: 300 MG, DAILY
     Route: 048
     Dates: start: 200101, end: 202007

REACTIONS (2)
  - Colorectal cancer stage IV [Not Recovered/Not Resolved]
  - Hepatic cancer [Not Recovered/Not Resolved]

NARRATIVE: CASE EVENT DATE: 20140101
